FAERS Safety Report 20795725 (Version 7)
Quarter: 2023Q1

REPORT INFORMATION
  Report Type: Spontaneous
  Country: BE (occurrence: BE)
  Receive Date: 20220506
  Receipt Date: 20230131
  Transmission Date: 20230417
  Serious: Yes (Life-Threatening, Hospitalization, Other)
  Sender: FDA-Public Use
  Company Number: BE-PFIZER INC-202200526034

PATIENT
  Age: 77 Year
  Sex: Male
  Weight: 80 kg

DRUGS (21)
  1. METFORMIN [Suspect]
     Active Substance: METFORMIN HYDROCHLORIDE
     Indication: Type 2 diabetes mellitus
     Dosage: 1700 MILLIGRAM, QD (850 MG, 2X/DAY (0.5 DAY)
     Route: 048
     Dates: start: 20211027, end: 20220404
  2. ALDACTONE [Suspect]
     Active Substance: SPIRONOLACTONE
     Indication: Hypertension
     Dosage: 25 MILLIGRAM, QD (25 MG, 1X/DAY)
     Route: 048
     Dates: start: 20211210, end: 20220404
  3. SASANLIMAB [Concomitant]
     Active Substance: SASANLIMAB
     Indication: Bladder cancer
     Dosage: 300 MG, Q28D (INDUCTION PERIOD), CYCLE
     Route: 058
     Dates: start: 20201228, end: 20211005
  4. BCG VACCINE [Concomitant]
     Active Substance: BCG VACCINE
     Indication: Bladder cancer
     Dosage: UNK UNK, CYCLE
     Route: 043
     Dates: start: 20201228, end: 20210222
  5. BCG VACCINE [Concomitant]
     Active Substance: BCG VACCINE
     Indication: Bladder transitional cell carcinoma
     Dosage: 50ML,PER PROTOCOL ARMB,ONLY INDUCTION PERIOD-6W
     Route: 043
     Dates: start: 20201228, end: 20210222
  6. CALCIUM CARBONATE\CHOLECALCIFEROL [Concomitant]
     Active Substance: CALCIUM CARBONATE\CHOLECALCIFEROL
     Indication: Product used for unknown indication
     Dosage: 1000 MG, 1X/DAY
     Route: 048
     Dates: start: 20211027
  7. ELIQUIS [Concomitant]
     Active Substance: APIXABAN
     Indication: Blood pressure measurement
     Dosage: 10 MILLIGRAM, QD (5 MG, 2X/DAY)
     Route: 048
     Dates: start: 20211027, end: 20220404
  8. ELIQUIS [Concomitant]
     Active Substance: APIXABAN
     Indication: Blood pressure abnormal
  9. ALENDRONATE [Concomitant]
     Active Substance: ALENDRONATE SODIUM
     Indication: Polymyalgia rheumatica
     Dosage: 70 MG, WEEKLY
     Route: 048
     Dates: start: 20211123, end: 20220404
  10. NOVORAPID [Concomitant]
     Active Substance: INSULIN ASPART
     Indication: Type 2 diabetes mellitus
     Dosage: UNK UNK, QD (100 IU/ML, 1X/DAY)
     Route: 058
     Dates: start: 2013
  11. NOVORAPID [Concomitant]
     Active Substance: INSULIN ASPART
     Dosage: UNK
     Route: 058
     Dates: start: 2013
  12. ZOCOR [Concomitant]
     Active Substance: SIMVASTATIN
     Indication: Blood cholesterol
     Dosage: 40 MILLIGRAM, QD (40 MG, 1X/DAY)
     Route: 048
     Dates: start: 2013, end: 20220404
  13. ZOCOR [Concomitant]
     Active Substance: SIMVASTATIN
     Indication: Blood cholesterol abnormal
  14. Pantomed [Concomitant]
     Indication: Prophylaxis
     Dosage: 10 MILLIGRAM, QD (10 MG, 1X/DAY)
     Route: 048
     Dates: start: 20211027
  15. PREDNISOLONE [Concomitant]
     Active Substance: PREDNISOLONE
     Indication: Polymyalgia rheumatica
     Dosage: 7 MILLIGRAM, QD (7 MG, 1X/DAY)
     Route: 048
     Dates: start: 20220326, end: 20220424
  16. LANTUS [Concomitant]
     Active Substance: INSULIN GLARGINE
     Indication: Type 2 diabetes mellitus
     Dosage: UNK UNK, QD
     Route: 058
     Dates: start: 2013
  17. LANTUS [Concomitant]
     Active Substance: INSULIN GLARGINE
     Dosage: UNK
     Route: 058
     Dates: start: 2013
  18. BISOPROLOL [Concomitant]
     Active Substance: BISOPROLOL
     Indication: Blood pressure measurement
     Dosage: 2.5 MILLIGRAM, QD (2.5 MG, 1X/DAY)
     Route: 048
     Dates: start: 20210923
  19. BISOPROLOL [Concomitant]
     Active Substance: BISOPROLOL
     Indication: Blood pressure abnormal
     Dosage: 5 MILLIGRAM, QD (5 MG, 1X/DAY)
     Route: 048
     Dates: start: 20210923
  20. BISOPROLOL [Concomitant]
     Active Substance: BISOPROLOL
     Dosage: UNK
     Route: 048
     Dates: start: 20210923
  21. STEOVIT FORTE [Concomitant]
     Indication: Supplementation therapy
     Dosage: UNK, QD,1X/DAY
     Route: 048
     Dates: start: 20211027

REACTIONS (4)
  - Hyperkalaemia [Recovered/Resolved with Sequelae]
  - Renal failure [Not Recovered/Not Resolved]
  - Metabolic acidosis [Recovered/Resolved with Sequelae]
  - Chronic kidney disease [Not Recovered/Not Resolved]

NARRATIVE: CASE EVENT DATE: 20220404
